FAERS Safety Report 21980717 (Version 2)
Quarter: 2025Q4

REPORT INFORMATION
  Report Type: Report from Study
  Country: US (occurrence: US)
  Receive Date: 20230211
  Receipt Date: 20251119
  Transmission Date: 20260118
  Serious: Yes (Hospitalization)
  Sender: ROCHE
  Company Number: US-ROCHE-3281117

PATIENT
  Age: 14 Year
  Sex: Male

DRUGS (2)
  1. HEMLIBRA [Suspect]
     Active Substance: EMICIZUMAB-KXWH
     Indication: Factor VIII deficiency
     Dosage: INJECT 1.7ML (255MG) SUBCUTANEOUSLY EVERY WEEK FOR 4 DOSES. DRAW 1ML FROM 1-150MG VIAL AND 0.7ML FRO
     Route: 065
  2. HEMLIBRA [Suspect]
     Active Substance: EMICIZUMAB-KXWH
     Dosage: INJECT 1.7ML (255MG) SUBCUTANEOUSLY EVERY WEEK FOR 4 DOSES. DRAW 1ML FROM 1-150MG VIAL AND 0.7ML FRO
     Route: 065

REACTIONS (1)
  - Haemarthrosis [Unknown]

NARRATIVE: CASE EVENT DATE: 20251113
